FAERS Safety Report 19157879 (Version 2)
Quarter: 2021Q2

REPORT INFORMATION
  Report Type: Other
  Country: BE (occurrence: BE)
  Receive Date: 20210420
  Receipt Date: 20210429
  Transmission Date: 20210717
  Serious: Yes (Hospitalization)
  Sender: FDA-Public Use
  Company Number: BE-ROCHE-2807864

PATIENT
  Age: 50 Year
  Sex: Female
  Weight: 58 kg

DRUGS (12)
  1. DAFALGAN [Concomitant]
     Active Substance: ACETAMINOPHEN
  2. L?THYROXINE [Concomitant]
     Active Substance: LEVOTHYROXINE
  3. OXYNORM [Concomitant]
     Active Substance: OXYCODONE HYDROCHLORIDE
  4. PLENDIL [Concomitant]
     Active Substance: FELODIPINE
  5. TAMSULOSIN [Concomitant]
     Active Substance: TAMSULOSIN
  6. MEDROL [Concomitant]
     Active Substance: METHYLPREDNISOLONE
  7. ATEZOLIZUMAB. [Suspect]
     Active Substance: ATEZOLIZUMAB
     Indication: HEPATOCELLULAR CARCINOMA
     Dosage: 840MG/14ML
     Route: 041
     Dates: start: 20200731, end: 20200731
  8. ASAFLOW [Concomitant]
     Active Substance: ASPIRIN
  9. ROSUVASTATIN. [Concomitant]
     Active Substance: ROSUVASTATIN
  10. LYRICA [Concomitant]
     Active Substance: PREGABALIN
  11. CERAZETTE [Concomitant]
  12. DUROGESIC [Concomitant]
     Active Substance: FENTANYL

REACTIONS (2)
  - General physical health deterioration [Recovered/Resolved]
  - Pyrexia [Unknown]

NARRATIVE: CASE EVENT DATE: 20200810
